FAERS Safety Report 16572965 (Version 3)
Quarter: 2019Q3

REPORT INFORMATION
  Report Type: Spontaneous
  Country: US (occurrence: US)
  Receive Date: 20190715
  Receipt Date: 20190905
  Transmission Date: 20191004
  Serious: No
  Sender: FDA-Public Use
  Company Number: US-SA-2019SA189205

PATIENT
  Age: 46 Year
  Sex: Female

DRUGS (2)
  1. PRALUENT [Suspect]
     Active Substance: ALIROCUMAB
     Indication: ARTERIOSCLEROSIS CORONARY ARTERY
  2. PRALUENT [Suspect]
     Active Substance: ALIROCUMAB
     Indication: HYPERLIPIDAEMIA
     Dosage: 75 MG, QOW
     Route: 058
     Dates: start: 20190523

REACTIONS (16)
  - Hypoacusis [Unknown]
  - Pain [Unknown]
  - Influenza like illness [Unknown]
  - Peripheral swelling [Unknown]
  - Alopecia [Unknown]
  - Myalgia [Unknown]
  - Rhinorrhoea [Unknown]
  - Muscular weakness [Unknown]
  - Sleep disorder [Unknown]
  - Headache [Unknown]
  - Tendonitis [Unknown]
  - Nausea [Unknown]
  - Joint stiffness [Unknown]
  - Hyperhidrosis [Unknown]
  - Arthralgia [Unknown]
  - Unevaluable event [Unknown]
